FAERS Safety Report 5073495-0 (Version None)
Quarter: 2006Q3

REPORT INFORMATION
  Report Type: 
  Country: None (occurrence: None)
  Receive Date: 20060808
  Receipt Date: 20060726
  Transmission Date: 20061208
  Serious: Yes (Death)
  Sender: FDA-Public Use
  Company Number: JP-AVENTIS-200612365JP

PATIENT
  Age: 62 Year
  Sex: Male

DRUGS (2)
  1. TAXOTERE [Suspect]
     Indication: LUNG ADENOCARCINOMA
     Dates: start: 20050621
  2. RADIATION [Suspect]

REACTIONS (4)
  - OESOPHAGITIS [None]
  - PLATELET COUNT DECREASED [None]
  - RADIATION PNEUMONITIS [None]
  - WHITE BLOOD CELL COUNT DECREASED [None]
